FAERS Safety Report 14144460 (Version 1)
Quarter: 2017Q4

REPORT INFORMATION
  Report Type: Spontaneous
  Country: JP (occurrence: JP)
  Receive Date: 20171031
  Receipt Date: 20171031
  Transmission Date: 20180321
  Serious: Yes (Hospitalization)
  Sender: FDA-Public Use
  Company Number: JP-ORPHAN EUROPE-2032787

PATIENT
  Age: 12 Month
  Sex: Male

DRUGS (5)
  1. CALCIUM FOLINATE [Concomitant]
     Active Substance: LEUCOVORIN CALCIUM
     Dates: start: 20161213
  2. CYSTADANE [Suspect]
     Active Substance: BETAINE
     Indication: VITAMIN B12 DEFICIENCY
     Route: 048
     Dates: start: 20161213
  3. LEVOCARNITINE. [Concomitant]
     Active Substance: LEVOCARNITINE
     Route: 048
     Dates: start: 20161128, end: 20170530
  4. COBAMAMIDE [Concomitant]
     Active Substance: COBAMAMIDE
     Dates: start: 20161213
  5. HYDROXOCOBALAMIN ACETATE. [Concomitant]
     Active Substance: HYDROXOCOBALAMIN ACETATE
     Dates: start: 20161212

REACTIONS (1)
  - Pulmonary oedema [Recovered/Resolved]

NARRATIVE: CASE EVENT DATE: 20161213
